FAERS Safety Report 7643039-5 (Version None)
Quarter: 2011Q3

REPORT INFORMATION
  Report Type: 
  Country: None (occurrence: None)
  Receive Date: 20110728
  Receipt Date: 20110719
  Transmission Date: 20111222
  Serious: Yes (Other)
  Sender: FDA-Public Use
  Company Number: CN-ASTRAZENECA-2011SE42732

PATIENT
  Age: 52 Year
  Sex: Female

DRUGS (4)
  1. LIDOCAINE [Suspect]
     Indication: ANAESTHESIA
     Route: 042
  2. INNOVAR [Concomitant]
     Dosage: HALF DOSAGE
  3. LIDOCAINE [Suspect]
     Route: 042
  4. LIDOCAINE [Suspect]
     Route: 042

REACTIONS (4)
  - MIOSIS [None]
  - PUPILLARY REFLEX IMPAIRED [None]
  - DIZZINESS [None]
  - LOSS OF CONSCIOUSNESS [None]
